FAERS Safety Report 19183891 (Version 3)
Quarter: 2021Q2

REPORT INFORMATION
  Report Type: Spontaneous
  Country: US (occurrence: US)
  Receive Date: 20210427
  Receipt Date: 20210524
  Transmission Date: 20210717
  Serious: Yes (Other)
  Sender: FDA-Public Use
  Company Number: US-SA-2021SA137164

PATIENT
  Age: 56 Year
  Sex: Female

DRUGS (20)
  1. DUPIXENT [Suspect]
     Active Substance: DUPILUMAB
     Indication: ASTHMA
     Dosage: 600 MG, 1X
     Route: 058
     Dates: start: 202104, end: 202104
  2. NORTRIPTYLIN [Concomitant]
     Active Substance: NORTRIPTYLINE
  3. ACETAMINOPHEN. [Concomitant]
     Active Substance: ACETAMINOPHEN
  4. LEVOCETIRIZINE [Concomitant]
     Active Substance: LEVOCETIRIZINE
  5. BUDESONIDE. [Concomitant]
     Active Substance: BUDESONIDE
  6. BUPROPION. [Concomitant]
     Active Substance: BUPROPION
  7. VENTOLIN HFA [Concomitant]
     Active Substance: ALBUTEROL SULFATE
     Dosage: AER 108 (90
  8. TIZANIDINE. [Concomitant]
     Active Substance: TIZANIDINE
  9. STIOLTO RESPIMAT [Concomitant]
     Active Substance: OLODATEROL HYDROCHLORIDE\TIOTROPIUM BROMIDE MONOHYDRATE
     Dosage: AER 2.5?2.5M
  10. COLCHICINE. [Concomitant]
     Active Substance: COLCHICINE
  11. ALBUTEROL [SALBUTAMOL] [Concomitant]
     Active Substance: ALBUTEROL
  12. DUPIXENT [Suspect]
     Active Substance: DUPILUMAB
     Dosage: 300 MG, QOW
     Route: 058
     Dates: start: 2021, end: 20210514
  13. CEFDINIR. [Concomitant]
     Active Substance: CEFDINIR
  14. CHLORZOXAZON [Concomitant]
     Active Substance: CHLORZOXAZONE
  15. PROMETHAZINE [Concomitant]
     Active Substance: PROMETHAZINE HYDROCHLORIDE
     Dosage: 25 MG
  16. HYDROCODONE [Concomitant]
     Active Substance: HYDROCODONE
     Dosage: 110 MG
  17. DICLOFENAC [Concomitant]
     Active Substance: DICLOFENAC
     Dosage: S GEL 1%,
  18. LEVOCETIRIZIN [Concomitant]
     Active Substance: LEVOCETIRIZINE DIHYDROCHLORIDE
  19. DICLOFENAC [Concomitant]
     Active Substance: DICLOFENAC
  20. NYSTATIN. [Concomitant]
     Active Substance: NYSTATIN
     Dosage: TAB 500000UNIT

REACTIONS (12)
  - Croup infectious [Unknown]
  - Injection site swelling [Unknown]
  - Contusion [Unknown]
  - Product use issue [Unknown]
  - Stress [Unknown]
  - Lip haemorrhage [Unknown]
  - Injection site mass [Unknown]
  - Peripheral swelling [Unknown]
  - Arthralgia [Unknown]
  - Fall [Unknown]
  - Product dose omission issue [Unknown]
  - Cough [Unknown]

NARRATIVE: CASE EVENT DATE: 2021
